FAERS Safety Report 6272615-X (Version None)
Quarter: 2009Q3

REPORT INFORMATION
  Report Type: 
  Country: None (occurrence: None)
  Receive Date: 20090717
  Receipt Date: 20090708
  Transmission Date: 20100115
  Serious: Yes (Hospitalization)
  Sender: FDA-Public Use
  Company Number: CH-ASTRAZENECA-2009SE04378

PATIENT
  Age: 4 Year
  Sex: Male
  Weight: 18 kg

DRUGS (1)
  1. EMLA [Suspect]
     Indication: MOLLUSCUM CONTAGIOSUM
     Route: 061
     Dates: start: 20090529, end: 20090529

REACTIONS (2)
  - BRADYCARDIA [None]
  - SYNCOPE [None]
